FAERS Safety Report 6503021-8 (Version None)
Quarter: 2009Q4

REPORT INFORMATION
  Report Type: 
  Country: None (occurrence: None)
  Receive Date: 20091201
  Receipt Date: 20090824
  Transmission Date: 20100525
  Serious: Yes (Other)
  Sender: FDA-Public Use
  Company Number: AUR-APL-2009-00494

PATIENT
  Sex: Male

DRUGS (4)
  1. ATENOLOL [Suspect]
  2. LISINOPRIL [Suspect]
  3. COREG [Suspect]
  4. TOPROL-XL [Suspect]

REACTIONS (2)
  - COUGH [None]
  - DIZZINESS [None]
